FAERS Safety Report 8307680 (Version 4)
Quarter: 2013Q3

REPORT INFORMATION
  Report Type: Spontaneous
  Country: US (occurrence: US)
  Receive Date: 20111222
  Receipt Date: 20130812
  Transmission Date: 20140515
  Serious: Yes (Hospitalization, Other)
  Sender: FDA-Public Use
  Company Number: US-ROCHE-802461

PATIENT
  Sex: Female
  Weight: 95.34 kg

DRUGS (2)
  1. ACCUTANE [Suspect]
     Indication: ACNE
     Dosage: TAKEN IN 80S FOR 3 TO 4 MONTHS
     Route: 048
  2. ACCUTANE [Suspect]
     Dosage: TAKEN FOR 9 MONTHS
     Route: 065

REACTIONS (6)
  - Renal failure [Recovered/Resolved]
  - Crohn^s disease [Unknown]
  - Inflammatory bowel disease [Unknown]
  - Depression [Unknown]
  - Osteopenia [Unknown]
  - Arthralgia [Unknown]
